FAERS Safety Report 4903598-X (Version None)
Quarter: 2006Q1

REPORT INFORMATION
  Report Type: 
  Country: None (occurrence: None)
  Receive Date: 20060208
  Receipt Date: 20060113
  Transmission Date: 20060701
  Serious: Yes (Other)
  Sender: FDA-Public Use
  Company Number: JP-SOLVAY-00306000195

PATIENT
  Age: 14016 Day
  Sex: Female
  Weight: 60 kg

DRUGS (5)
  1. LUVOX [Suspect]
     Indication: ILL-DEFINED DISORDER
     Dosage: DAILY DOSE: 50 MILLIGRAM(S)
     Route: 048
     Dates: start: 20040707, end: 20050609
  2. LUVOX [Suspect]
     Dosage: DAILY DOSE: 100 MILLIGRAM(S)
     Route: 048
     Dates: start: 20050610, end: 20060119
  3. LUVOX [Suspect]
     Dosage: DAILY DOSE: 50 MILLIGRAM(S)
     Route: 048
     Dates: start: 20060120
  4. LORAZEPAM [Concomitant]
     Indication: ILL-DEFINED DISORDER
     Dosage: DAILY DOSE: 1 MILLIGRAM(S)
     Route: 048
     Dates: start: 20040707
  5. MEDICON [Concomitant]
     Indication: ILL-DEFINED DISORDER
     Dosage: DAILY DOSE: 45 MILLIGRAM(S)
     Route: 048
     Dates: start: 20051118, end: 20051124

REACTIONS (1)
  - HYPERKALAEMIA [None]
